FAERS Safety Report 8813131 (Version 1)
Quarter: 2012Q4

REPORT INFORMATION
  Report Type: 
  Country: JP (occurrence: JP)
  Receive Date: 20120927
  Receipt Date: 20120927
  Transmission Date: 20130627
  Serious: Yes (Hospitalization)
  Sender: FDA-Public Use
  Company Number: JP-MYLANLABS-2012S1019360

PATIENT
  Age: 55 Year
  Sex: Female

DRUGS (3)
  1. LITHIUM [Suspect]
     Indication: BIPOLAR I DISORDER
  2. LITHIUM [Suspect]
     Indication: BIPOLAR I DISORDER
     Dosage: Patient took one additional tablet in a day in the beginning; subsequent dosages not stated
     Dates: end: 201106
  3. BROMAZEPAM [Concomitant]
     Dosage: 5mg in the evening

REACTIONS (4)
  - Toxicity to various agents [Recovering/Resolving]
  - Delusion of replacement [Recovered/Resolved]
  - Incorrect dose administered [Recovered/Resolved]
  - Derealisation [Recovered/Resolved]
